FAERS Safety Report 13238820 (Version 3)
Quarter: 2017Q2

REPORT INFORMATION
  Report Type: Spontaneous
  Country: US (occurrence: US)
  Receive Date: 20170216
  Receipt Date: 20170411
  Transmission Date: 20170830
  Serious: Yes (Life-Threatening, Hospitalization)
  Sender: FDA-Public Use
  Company Number: US-UNITED THERAPEUTICS-UNT-2017-002055

PATIENT
  Age: 32 Year
  Sex: Female
  Weight: 60.32 kg

DRUGS (1)
  1. REMODULIN [Suspect]
     Active Substance: TREPROSTINIL
     Indication: PULMONARY HYPERTENSION
     Dosage: 0.180 ?G/KG, CONTINUING
     Route: 058
     Dates: start: 20100727

REACTIONS (2)
  - Palpitations [Unknown]
  - Respiratory failure [Unknown]

NARRATIVE: CASE EVENT DATE: 201702
